FAERS Safety Report 5004191-3 (Version None)
Quarter: 2006Q2

REPORT INFORMATION
  Report Type: 
  Country: None (occurrence: None)
  Receive Date: 20060517
  Receipt Date: 20060508
  Transmission Date: 20061013
  Serious: Yes (Hospitalization)
  Sender: FDA-Public Use
  Company Number: PHFR2006GB01638

PATIENT
  Age: 44 Year
  Sex: Male
  Weight: 53 kg

DRUGS (14)
  1. VOLTAREN [Suspect]
     Indication: PAIN
     Dosage: 50 MG, TID, PRN
     Route: 048
  2. VIREAD [Suspect]
     Indication: HIV INFECTION
     Dosage: 300 MG, QD
     Route: 048
     Dates: start: 20030601, end: 20060412
  3. MORPHINE [Concomitant]
     Dosage: 30MG/DAY
     Route: 048
     Dates: start: 19950101
  4. ZOPICLONE [Concomitant]
     Indication: SLEEP DISORDER
     Dosage: 3.75MG NOCTE
     Route: 065
  5. ZOPICLONE [Concomitant]
     Dosage: 2MG NOCTE
     Route: 065
  6. DIAZEPAM [Concomitant]
     Dosage: 5 MG PRN
     Route: 065
     Dates: start: 20060101
  7. PREDNISOLONE [Concomitant]
     Indication: CYTOMEGALOVIRUS CHORIORETINITIS
     Dosage: UNK, QD
     Route: 047
     Dates: start: 19960101
  8. HEROIN [Concomitant]
     Dates: start: 20051201
  9. ABACAVIR [Concomitant]
     Indication: HIV INFECTION
     Dosage: 300 MG, BID
     Route: 048
     Dates: start: 20030601
  10. KALETRA [Concomitant]
     Indication: HIV INFECTION
     Dosage: 3 BID
     Route: 048
     Dates: start: 20030601
  11. ORAMORPH SR [Concomitant]
     Indication: PAIN
     Dosage: 10 MG, PRN
     Route: 048
  12. HYDROCORTISONE [Concomitant]
     Indication: ADRENAL INSUFFICIENCY
     Dosage: 10MG MANE / 5 MG NOCTE
     Route: 048
     Dates: start: 19950101
  13. TELMISARTAN [Concomitant]
     Indication: HYPERTENSION
     Dosage: 20 MG, QD
     Route: 048
     Dates: start: 20040101
  14. RISEDRONIC ACID [Concomitant]
     Indication: BONE DENSITY DECREASED
     Dosage: 35 MG, QW
     Route: 048
     Dates: start: 20030101

REACTIONS (8)
  - AMINOACIDURIA [None]
  - BLOOD ALKALINE PHOSPHATASE INCREASED [None]
  - BLOOD CREATININE INCREASED [None]
  - BLOOD PHOSPHORUS DECREASED [None]
  - BLOOD UREA INCREASED [None]
  - FANCONI SYNDROME ACQUIRED [None]
  - RENAL FAILURE ACUTE [None]
  - URINE PHOSPHATE INCREASED [None]
